FAERS Safety Report 18570600 (Version 1)
Quarter: 2020Q4

REPORT INFORMATION
  Report Type: Spontaneous
  Country: US (occurrence: US)
  Receive Date: 20201202
  Receipt Date: 20201202
  Transmission Date: 20210114
  Serious: No
  Sender: FDA-Public Use
  Company Number: None

PATIENT
  Age: 56 Year
  Sex: Female

DRUGS (10)
  1. DESVENLAFAX [Concomitant]
  2. PRISTIQ, [Concomitant]
  3. DITIAZEM, [Concomitant]
  4. PROPAFENONE, [Concomitant]
  5. TRICKEDI [Concomitant]
  6. ALBUTEROL, [Concomitant]
  7. CARITA XT [Concomitant]
  8. RASUVO [Suspect]
     Active Substance: METHOTREXATE SODIUM
     Indication: RHEUMATOID ARTHRITIS
     Dosage: ?          OTHER FREQUENCY:WEEKLY;?
     Route: 058
     Dates: start: 20190717
  9. LEUCOVOR, [Concomitant]
  10. XOLAR [Concomitant]

REACTIONS (2)
  - Rheumatoid arthritis [None]
  - Alopecia [None]

NARRATIVE: CASE EVENT DATE: 20201201
